FAERS Safety Report 8444177-X (Version None)
Quarter: 2012Q2

REPORT INFORMATION
  Report Type: 
  Country: None (occurrence: None)
  Receive Date: 20120611
  Receipt Date: 20120516
  Transmission Date: 20120825
  Serious: Yes (Other)
  Sender: FDA-Public Use
  Company Number: 001242126A

PATIENT
  Age: 76 Year
  Sex: Female

DRUGS (2)
  1. MEANINGFUL BEAUTY DAY CREAM SPF 20 [Suspect]
     Dosage: ONCE DERMAL
     Route: 061
     Dates: start: 20120115
  2. DECOLLETE AND NECK TREATMENT SPF 15 [Suspect]
     Dosage: ONCE DERMAL
     Route: 061
     Dates: start: 20120115

REACTIONS (3)
  - URTICARIA [None]
  - PRURITUS [None]
  - DYSPNOEA [None]
